FAERS Safety Report 5838072-X (Version None)
Quarter: 2008Q3

REPORT INFORMATION
  Report Type: 
  Country: None (occurrence: None)
  Receive Date: 20080808
  Receipt Date: 20080507
  Transmission Date: 20090109
  Serious: No
  Sender: FDA-Public Use
  Company Number: A0727775A

PATIENT
  Sex: Female

DRUGS (2)
  1. PAXIL [Suspect]
     Indication: OBSESSIVE-COMPULSIVE DISORDER
     Dosage: 40MG UNKNOWN
     Route: 048
  2. HERBAL SUPPLEMENT [Suspect]
     Indication: DRUG USE FOR UNKNOWN INDICATION
     Route: 065

REACTIONS (5)
  - ANXIETY [None]
  - DRUG EFFECT DECREASED [None]
  - DRUG INTERACTION [None]
  - LIBIDO DECREASED [None]
  - PANIC ATTACK [None]
